FAERS Safety Report 10027014 (Version 1)
Quarter: 2014Q1

REPORT INFORMATION
  Report Type: Spontaneous
  Country: US (occurrence: US)
  Receive Date: 20140321
  Receipt Date: 20140321
  Transmission Date: 20141002
  Serious: No
  Sender: FDA-Public Use
  Company Number: US-009507513-1403USA008133

PATIENT
  Age: 63 Year
  Sex: Male

DRUGS (3)
  1. PEGINTRON [Suspect]
     Indication: HEPATITIS C
     Dosage: 0.4 ML, QW(VIAL)
     Route: 058
     Dates: start: 20140307
  2. REBETOL [Suspect]
     Indication: HEPATITIS C
     Dosage: UNK, BID
     Route: 048
     Dates: start: 20140307
  3. SOVALDI [Concomitant]
     Dosage: 400 MG, QD
     Route: 048

REACTIONS (1)
  - Injection site rash [Unknown]
